FAERS Safety Report 7915771 (Version 6)
Quarter: 2012Q4

REPORT INFORMATION
  Report Type: 
  Country: US (occurrence: US)
  Receive Date: 20110426
  Receipt Date: 20120911
  Transmission Date: 20130627
  Serious: Yes (Hospitalization, Other)
  Sender: FDA-Public Use
  Company Number: US-009507513-1104USA02660

PATIENT

DRUGS (6)
  1. FOSAMAX [Suspect]
     Indication: OSTEOPENIA
     Dosage: 10 mg, qd
     Route: 048
     Dates: start: 200312, end: 2006
  2. FOSAMAX [Suspect]
     Dosage: 70 mg, QW
     Route: 048
  3. FOSAMAX [Suspect]
     Indication: OSTEOPENIA
     Dosage: 70 mg, UNK
     Route: 048
     Dates: start: 200907, end: 20100106
  4. VITAMIN E [Concomitant]
     Dosage: 800 U, qd
     Dates: start: 200004, end: 200905
  5. FOSAMAX D [Suspect]
     Indication: OSTEOPENIA
     Dosage: 70 mg, QW
     Route: 048
     Dates: start: 200705, end: 200906
  6. FOSAMAX D [Suspect]
     Dosage: 70 mg, QW
     Route: 048
     Dates: start: 200705, end: 200906

REACTIONS (69)
  - Malignant melanoma [Unknown]
  - Deep vein thrombosis [Unknown]
  - Pulmonary embolism [Unknown]
  - Pulmonary infarction [Unknown]
  - Device failure [Unknown]
  - Malignant melanoma in situ [Unknown]
  - Uterine leiomyoma [Unknown]
  - Lipoma [Unknown]
  - Deep vein thrombosis [Unknown]
  - Femur fracture [Recovering/Resolving]
  - Low turnover osteopathy [Unknown]
  - Tooth loss [Unknown]
  - Tooth disorder [Unknown]
  - Hypercholesterolaemia [Unknown]
  - Macular degeneration [Unknown]
  - Vulva cyst [Unknown]
  - Adverse event [Unknown]
  - Hypothyroidism [Unknown]
  - Fall [Unknown]
  - Fracture delayed union [Unknown]
  - Melanocytic naevus [Unknown]
  - Nasal congestion [Unknown]
  - Upper-airway cough syndrome [Unknown]
  - Sensation of foreign body [Unknown]
  - Meniscus injury [Unknown]
  - Depression [Unknown]
  - Anxiety [Unknown]
  - Feeling jittery [Unknown]
  - Hyperglycaemia [Recovered/Resolved]
  - Gastroenteritis [Unknown]
  - Cervicobrachial syndrome [Unknown]
  - Hyperhidrosis [Unknown]
  - Insomnia [Unknown]
  - Stress urinary incontinence [Unknown]
  - Osteoarthritis [Unknown]
  - Osteoporosis [Unknown]
  - Cardiac murmur [Unknown]
  - Cataract [Unknown]
  - Adenomatous polyposis coli [Unknown]
  - Type 2 diabetes mellitus [Unknown]
  - Ligament rupture [Unknown]
  - Tonsillar disorder [Unknown]
  - Adenoidal disorder [Unknown]
  - Urinary tract infection [Unknown]
  - Epistaxis [Recovered/Resolved]
  - Lichenoid keratosis [Unknown]
  - Osteoarthritis [Unknown]
  - Meniscus injury [Unknown]
  - Ligament rupture [Unknown]
  - Cartilage injury [Unknown]
  - Tricuspid valve incompetence [Unknown]
  - Mitral valve incompetence [Unknown]
  - Pulmonary hypertension [Unknown]
  - Aortic valve incompetence [Unknown]
  - Left ventricular hypertrophy [Unknown]
  - Aortic arteriosclerosis [Unknown]
  - Hypotension [Recovered/Resolved]
  - Cystitis [Unknown]
  - Blepharitis [Unknown]
  - Vulvovaginal pruritus [Unknown]
  - Upper respiratory tract infection [Unknown]
  - Back pain [Unknown]
  - Gastrooesophageal reflux disease [Unknown]
  - Nausea [Recovered/Resolved]
  - Alcohol use [None]
  - Fibrocystic breast disease [None]
  - Breast calcifications [None]
  - Diverticulum intestinal [None]
  - Haemorrhoids [None]
